FAERS Safety Report 25556744 (Version 2)
Quarter: 2025Q3

REPORT INFORMATION
  Report Type: Report from Study
  Country: GB (occurrence: GB)
  Receive Date: 20250715
  Receipt Date: 20250827
  Transmission Date: 20251021
  Serious: Yes (Hospitalization)
  Sender: ABBVIE
  Company Number: GB-ABBVIE-6367821

PATIENT
  Age: 78 Year
  Sex: Female

DRUGS (1)
  1. SKYRIZI [Suspect]
     Active Substance: RISANKIZUMAB-RZAA
     Indication: Crohn^s disease
     Dosage: DOSE: 1.00 EA, FORM STRENGTH: 360MG/2.4ML, DOSE FORM: SOLUTION FOR INJECTION IN CARTRIDGE
     Route: 058
     Dates: start: 20250411

REACTIONS (4)
  - Haematoma [Unknown]
  - Pneumonia [Unknown]
  - Thrombosis [Unknown]
  - Gait inability [Not Recovered/Not Resolved]

NARRATIVE: CASE EVENT DATE: 20250101
